FAERS Safety Report 9216126 (Version 1)
Quarter: 2013Q2

REPORT INFORMATION
  Report Type: Spontaneous
  Country: DE (occurrence: DE)
  Receive Date: 20130408
  Receipt Date: 20130408
  Transmission Date: 20140414
  Serious: Yes (Life-Threatening, Hospitalization, Other)
  Sender: FDA-Public Use
  Company Number: DE-ACCORD-017065

PATIENT
  Age: 39 Year
  Sex: Male

DRUGS (5)
  1. GEMCITABINE [Suspect]
     Indication: THYMOMA MALIGNANT
     Dates: start: 201001, end: 201004
  2. MITOMYCIN [Suspect]
     Indication: THYMOMA MALIGNANT
     Dosage: TRANSARTERIAL CHEMOEMBOLIZATION OF LIVER METASTASIS-MITOMYCIN 1,270 MG TOTAL
     Dates: start: 201102
  3. TAXOTERE [Suspect]
     Indication: THYMOMA MALIGNANT
     Dates: start: 201001, end: 201004
  4. OXALIPLATIN [Suspect]
     Indication: THYMOMA MALIGNANT
     Dosage: SIX CYCLES OF OXALIPLATIN
     Dates: start: 201004, end: 201008
  5. CAPECITABINE [Suspect]
     Indication: THYMOMA MALIGNANT
     Dosage: SIX CYCLES OF CAPECITABINE
     Dates: start: 201004, end: 201008

REACTIONS (5)
  - Progressive multifocal leukoencephalopathy [Unknown]
  - Palmar-plantar erythrodysaesthesia syndrome [Unknown]
  - Lymphopenia [Unknown]
  - JC virus infection [Unknown]
  - Off label use [Unknown]
